FAERS Safety Report 4416175-4 (Version None)
Quarter: 2004Q3

REPORT INFORMATION
  Report Type: 
  Country: None (occurrence: None)
  Receive Date: 20040803
  Receipt Date: 20040719
  Transmission Date: 20050211
  Serious: Yes (Death)
  Sender: FDA-Public Use
  Company Number: US-JNJFOC-20040701062

PATIENT
  Age: 70 Year
  Sex: Male

DRUGS (3)
  1. DURAGESIC [Suspect]
     Indication: CANCER PAIN
     Dosage: 50 UG/HR, 1 IN 72 HOUR, TRANSDERMAL
     Route: 062
     Dates: start: 20040227, end: 20040306
  2. METHADONE HCL [Concomitant]
  3. PERCOCET [Concomitant]

REACTIONS (3)
  - ABNORMAL BEHAVIOUR [None]
  - MEDICATION ERROR [None]
  - ORGAN FAILURE [None]
